FAERS Safety Report 10501509 (Version 1)
Quarter: 2014Q4

REPORT INFORMATION
  Report Type: Spontaneous
  Country: US (occurrence: None)
  Receive Date: 20141006
  Receipt Date: 20141006
  Transmission Date: 20150528
  Serious: Yes (Hospitalization, Disabling)
  Sender: FDA-Public Use
  Company Number: None

PATIENT
  Age: 50 Year
  Sex: Female
  Weight: 108.86 kg

DRUGS (1)
  1. LEVAQUIN [Suspect]
     Active Substance: LEVOFLOXACIN
     Indication: LOWER RESPIRATORY TRACT INFECTION
     Dosage: 2 PILLS ONCE DAILY TAKEN BY MOUTH
     Route: 048
     Dates: start: 20090624, end: 20090625

REACTIONS (9)
  - Activities of daily living impaired [None]
  - Palpitations [None]
  - Drug effect decreased [None]
  - Wheelchair user [None]
  - Fatigue [None]
  - Pain [None]
  - Asthenia [None]
  - Pain in extremity [None]
  - Gait disturbance [None]
